FAERS Safety Report 9761229 (Version 1)
Quarter: 2013Q4

REPORT INFORMATION
  Report Type: Spontaneous
  Country: US (occurrence: US)
  Receive Date: 20131216
  Receipt Date: 20131216
  Transmission Date: 20140711
  Serious: Yes (Hospitalization, Other)
  Sender: FDA-Public Use
  Company Number: US-BAYER-2013-150656

PATIENT
  Age: 43 Year
  Sex: Male

DRUGS (5)
  1. DACARBAZINE [Suspect]
     Indication: HODGKIN^S DISEASE
  2. DOXORUBICIN [Suspect]
     Indication: HODGKIN^S DISEASE
  3. VINBLASTINE [Suspect]
     Indication: HODGKIN^S DISEASE
  4. BLEOMYCIN [Suspect]
     Indication: HODGKIN^S DISEASE
  5. OXYCODONE W/PARACETAMOL [Concomitant]

REACTIONS (3)
  - Clostridium difficile infection [Recovering/Resolving]
  - Clostridium difficile colitis [Recovering/Resolving]
  - Pancytopenia [None]
